FAERS Safety Report 4975175-6 (Version None)
Quarter: 2006Q2

REPORT INFORMATION
  Report Type: 
  Country: None (occurrence: None)
  Receive Date: 20060418
  Receipt Date: 20060414
  Transmission Date: 20061013
  Serious: Yes (Other)
  Sender: FDA-Public Use
  Company Number: US-GLAXOSMITHKLINE-A0601838A

PATIENT
  Age: 76 Year
  Sex: Male

DRUGS (2)
  1. AVODART [Suspect]
     Indication: BENIGN PROSTATIC HYPERPLASIA
     Dosage: .5MG PER DAY
     Route: 048
     Dates: start: 20060107, end: 20060407
  2. HYTRIN [Concomitant]

REACTIONS (4)
  - AGGRESSION [None]
  - ASTHENIA [None]
  - DEPRESSION [None]
  - PERSONALITY CHANGE [None]
